FAERS Safety Report 11544797 (Version 1)
Quarter: 2015Q3

REPORT INFORMATION
  Report Type: Report from Study
  Country: US (occurrence: US)
  Receive Date: 20150924
  Receipt Date: 20150924
  Transmission Date: 20151125
  Serious: Yes (Hospitalization)
  Sender: FDA-Public Use
  Company Number: US-BAYER-2015-398483

PATIENT
  Age: 71 Year
  Sex: Male

DRUGS (1)
  1. STIVARGA [Suspect]
     Active Substance: REGORAFENIB
     Indication: COLORECTAL CANCER
     Dosage: 120 MG, QD
     Route: 048
     Dates: start: 20150807, end: 20150905

REACTIONS (6)
  - Gastrointestinal haemorrhage [None]
  - Abdominal pain [None]
  - Constipation [None]
  - Abdominal pain upper [None]
  - Faeces discoloured [None]
  - Nausea [None]

NARRATIVE: CASE EVENT DATE: 201508
